FAERS Safety Report 5124467-9 (Version None)
Quarter: 2006Q4

REPORT INFORMATION
  Report Type: 
  Country: None (occurrence: None)
  Receive Date: 20061006
  Receipt Date: 20060925
  Transmission Date: 20070319
  Serious: Yes (Hospitalization)
  Sender: FDA-Public Use
  Company Number: B0439332A

PATIENT
  Age: 84 Year
  Sex: Male
  Weight: 56.8811 kg

DRUGS (4)
  1. PAXIL [Suspect]
     Dosage: 1 UNIT PER DAY ORAL
     Route: 048
     Dates: start: 20060730, end: 20060821
  2. LYSINE ASPIRIN                  (LYSINE ASPIRIN) [Suspect]
     Dosage: 1 UNIT PER DAY ORAL
     Route: 048
     Dates: start: 20060817, end: 20060821
  3. FUROSEMIDE [Concomitant]
  4. MOLSIDOMINE [Concomitant]

REACTIONS (6)
  - ANOREXIA [None]
  - COAGULATION FACTOR V LEVEL DECREASED [None]
  - GENERAL PHYSICAL HEALTH DETERIORATION [None]
  - HEPATIC FAILURE [None]
  - HEPATITIS [None]
  - PROTHROMBIN LEVEL DECREASED [None]
